FAERS Safety Report 16172649 (Version 1)
Quarter: 2019Q2

REPORT INFORMATION
  Report Type: Spontaneous
  Country: US (occurrence: US)
  Receive Date: 20190409
  Receipt Date: 20190409
  Transmission Date: 20190711
  Serious: Yes (Hospitalization)
  Sender: FDA-Public Use
  Company Number: US-GLAXOSMITHKLINE-US2019GSK059823

PATIENT
  Age: 76 Year
  Sex: Female
  Weight: 59.86 kg

DRUGS (3)
  1. BREO ELLIPTA [Suspect]
     Active Substance: FLUTICASONE FUROATE\VILANTEROL TRIFENATATE
     Indication: BRONCHITIS
     Dosage: 2 PUFF(S), UNK
  2. IBRANCE [Interacting]
     Active Substance: PALBOCICLIB
     Indication: INVASIVE DUCTAL BREAST CARCINOMA
     Dosage: 125 MG, Z
  3. LETROZOLE. [Concomitant]
     Active Substance: LETROZOLE

REACTIONS (13)
  - Dyspnoea [Unknown]
  - Stress [Unknown]
  - Decreased appetite [Unknown]
  - Atelectasis [Unknown]
  - Pleural effusion [Unknown]
  - Product use issue [Unknown]
  - Aspiration pleural cavity [Unknown]
  - Chest discomfort [Unknown]
  - Weight decreased [Unknown]
  - Rhinorrhoea [Unknown]
  - Chest pain [Unknown]
  - Nasopharyngitis [Unknown]
  - Cough [Unknown]

NARRATIVE: CASE EVENT DATE: 20190218
